FAERS Safety Report 16614703 (Version 4)
Quarter: 2020Q1

REPORT INFORMATION
  Report Type: Report from Study
  Country: None (occurrence: CA)
  Receive Date: 20190723
  Receipt Date: 20200127
  Transmission Date: 20200409
  Serious: Yes (Other)
  Sender: FDA-Public Use
  Company Number: CA-ABBVIE-19K-028-2862609-00

PATIENT
  Sex: Female

DRUGS (1)
  1. HUMIRA [Suspect]
     Active Substance: ADALIMUMAB
     Indication: HIDRADENITIS
     Route: 058
     Dates: start: 20160211, end: 201909

REACTIONS (7)
  - Immune system disorder [Unknown]
  - Cartilage atrophy [Not Recovered/Not Resolved]
  - Hip fracture [Not Recovered/Not Resolved]
  - Surgery [Unknown]
  - Arthritis infective [Unknown]
  - Infection [Unknown]
  - Unevaluable event [Unknown]

NARRATIVE: CASE EVENT DATE: 2019
